FAERS Safety Report 5005245-8 (Version None)
Quarter: 2006Q2

REPORT INFORMATION
  Report Type: 
  Country: None (occurrence: None)
  Receive Date: 20060515
  Receipt Date: 20060504
  Transmission Date: 20061013
  Serious: Yes (Other)
  Sender: FDA-Public Use
  Company Number: 163-20785-06050188

PATIENT
  Age: 49 Year
  Sex: Female

DRUGS (5)
  1. THALOMID [Suspect]
     Indication: MULTIPLE MYELOMA
     Dosage: 100 MG QHS ORAL
     Route: 048
     Dates: start: 20020117, end: 20050907
  2. ADRIAMYCIN PFS [Concomitant]
  3. CYTOXAN [Concomitant]
  4. EMEND [Concomitant]
  5. DECADRON SRC [Concomitant]

REACTIONS (2)
  - BREAST CANCER FEMALE [None]
  - CATHETER RELATED COMPLICATION [None]
